FAERS Safety Report 17656626 (Version 2)
Quarter: 2020Q2

REPORT INFORMATION
  Report Type: Report from Study
  Country: US (occurrence: US)
  Receive Date: 20200410
  Receipt Date: 20200424
  Transmission Date: 20200713
  Serious: Yes (Hospitalization, Other)
  Sender: FDA-Public Use
  Company Number: US-BAYER-2020-051688

PATIENT
  Age: 65 Year
  Sex: Female

DRUGS (3)
  1. OPSUMIT [Concomitant]
     Active Substance: MACITENTAN
     Dosage: 10 MG
     Dates: start: 20200328
  2. ADEMPAS [Suspect]
     Active Substance: RIOCIGUAT
     Indication: PULMONARY ARTERIAL HYPERTENSION
     Dosage: UNK
     Route: 048
  3. ADEMPAS [Suspect]
     Active Substance: RIOCIGUAT
     Indication: PULMONARY ARTERIAL HYPERTENSION
     Dosage: 2.0 MG, TID
     Route: 048
     Dates: start: 20200218

REACTIONS (6)
  - Lethargy [None]
  - Dyspnoea [Not Recovered/Not Resolved]
  - Surgery [None]
  - Diarrhoea [None]
  - Haemoglobin decreased [None]
  - Nausea [None]

NARRATIVE: CASE EVENT DATE: 2020
